FAERS Safety Report 24444880 (Version 2)
Quarter: 2024Q4

REPORT INFORMATION
  Report Type: Report from Study
  Country: US (occurrence: US)
  Receive Date: 20241016
  Receipt Date: 20241017
  Transmission Date: 20250115
  Serious: No
  Sender: ROCHE
  Company Number: US-ROCHE-3005658

PATIENT
  Age: 65 Year
  Sex: Male

DRUGS (3)
  1. RITUXAN [Suspect]
     Active Substance: RITUXIMAB
     Indication: Encephalitis
     Dosage: INFUSE 1000MG INTRAVENOUSLY ON DAY 1 AND DAY 15 EVERY 6 MONTHS (STRENGTH: 500 MG/50 ML)
     Route: 041
  2. RITUXAN [Suspect]
     Active Substance: RITUXIMAB
     Indication: Encephalomyelitis
  3. RITUXAN [Suspect]
     Active Substance: RITUXIMAB
     Indication: White blood cell disorder

REACTIONS (2)
  - Off label use [Unknown]
  - No adverse event [Unknown]
